FAERS Safety Report 18182430 (Version 5)
Quarter: 2021Q1

REPORT INFORMATION
  Report Type: Report from Study
  Country: MX (occurrence: MX)
  Receive Date: 20200821
  Receipt Date: 20210108
  Transmission Date: 20210419
  Serious: Yes (Other)
  Sender: FDA-Public Use
  Company Number: NVSC2020MX229554

PATIENT
  Age: 36 Year
  Sex: Female
  Weight: 85 kg

DRUGS (1)
  1. GALVUS MET [Suspect]
     Active Substance: METFORMIN HYDROCHLORIDE\VILDAGLIPTIN
     Indication: DIABETES MELLITUS
     Dosage: 1 DF, Q12H
     Route: 048

REACTIONS (8)
  - COVID-19 [Recovering/Resolving]
  - Fear of death [Unknown]
  - Myalgia [Recovering/Resolving]
  - Fatigue [Unknown]
  - Discomfort [Not Recovered/Not Resolved]
  - Dengue fever [Unknown]
  - Blood glucose increased [Not Recovered/Not Resolved]
  - Product dose omission issue [Unknown]

NARRATIVE: CASE EVENT DATE: 20200716
